FAERS Safety Report 6192168-4 (Version None)
Quarter: 2009Q2

REPORT INFORMATION
  Report Type: 
  Country: None (occurrence: None)
  Receive Date: 20090515
  Receipt Date: 20090514
  Transmission Date: 20091009
  Serious: Yes (Life-Threatening, Other)
  Sender: FDA-Public Use
  Company Number: PHHY2009AU13839

PATIENT
  Sex: Male

DRUGS (3)
  1. CLOZARIL [Suspect]
     Indication: SCHIZOPHRENIA
     Dosage: 275 MG, UNK
     Route: 048
     Dates: start: 20090306, end: 20090407
  2. VALPROATE SODIUM [Concomitant]
     Dosage: 500 MG MORNING, 1500 MG NIGHT
  3. NITRAZEPAM [Concomitant]
     Dosage: 5-10MG PRN NIGHT

REACTIONS (7)
  - ABDOMINAL DISCOMFORT [None]
  - BLOOD CREATINE PHOSPHOKINASE INCREASED [None]
  - C-REACTIVE PROTEIN INCREASED [None]
  - CARDIAC DISORDER [None]
  - MALAISE [None]
  - SALIVARY HYPERSECRETION [None]
  - TROPONIN INCREASED [None]
